FAERS Safety Report 10349721 (Version 1)
Quarter: 2014Q3

REPORT INFORMATION
  Report Type: Spontaneous
  Country: US (occurrence: None)
  Receive Date: 20140728
  Receipt Date: 20140728
  Transmission Date: 20150326
  Serious: Yes (Disabling)
  Sender: FDA-Public Use
  Company Number: None

PATIENT
  Age: 47 Year
  Sex: Female
  Weight: 85.28 kg

DRUGS (1)
  1. LOSARTAN/HCTZ [Suspect]
     Active Substance: HYDROCHLOROTHIAZIDE\LOSARTAN
     Indication: HYPERTENSION
     Dosage: 1 TABLET ONCE DAILY TAKEN BY MOUTH
     Route: 048

REACTIONS (5)
  - Sexual dysfunction [None]
  - Abdominal pain upper [None]
  - Arthralgia [None]
  - Pain in extremity [None]
  - Weight increased [None]
